FAERS Safety Report 15635235 (Version 2)
Quarter: 2018Q4

REPORT INFORMATION
  Report Type: Spontaneous
  Country: FR (occurrence: FR)
  Receive Date: 20181120
  Receipt Date: 20181128
  Transmission Date: 20190205
  Serious: Yes (Hospitalization)
  Sender: FDA-Public Use
  Company Number: FR-ROCHE-2217130

PATIENT
  Age: 96 Year
  Sex: Female
  Weight: 84 kg

DRUGS (2)
  1. EYLEA [Suspect]
     Active Substance: AFLIBERCEPT
     Indication: AGE-RELATED MACULAR DEGENERATION
     Dosage: IN RIGHT EYE
     Route: 031
  2. LUCENTIS [Suspect]
     Active Substance: RANIBIZUMAB
     Indication: AGE-RELATED MACULAR DEGENERATION
     Dosage: 10 MG/ML ?IN RIGHT EYE
     Route: 031

REACTIONS (5)
  - Dysmetria [Recovering/Resolving]
  - Hypertension [Recovering/Resolving]
  - Motor dysfunction [Recovering/Resolving]
  - Dysarthria [Recovering/Resolving]
  - Headache [Recovered/Resolved]

NARRATIVE: CASE EVENT DATE: 20180808
